FAERS Safety Report 14083256 (Version 1)
Quarter: 2017Q4

REPORT INFORMATION
  Report Type: Report from Study
  Country: US (occurrence: US)
  Receive Date: 20171012
  Receipt Date: 20171012
  Transmission Date: 20180321
  Serious: Yes (Death, Other)
  Sender: FDA-Public Use
  Company Number: US-BIOGEN-2010BI002860

PATIENT
  Sex: Female

DRUGS (2)
  1. AVONEX [Suspect]
     Active Substance: INTERFERON BETA-1A
     Route: 030
  2. AVONEX [Suspect]
     Active Substance: INTERFERON BETA-1A
     Indication: MULTIPLE SCLEROSIS
     Route: 030
     Dates: end: 2001

REACTIONS (5)
  - Multiple sclerosis relapse [Recovered/Resolved]
  - Urinary incontinence [Not Recovered/Not Resolved]
  - Myocardial infarction [Fatal]
  - Systemic lupus erythematosus [Recovered/Resolved]
  - Anal incontinence [Not Recovered/Not Resolved]
